FAERS Safety Report 15595988 (Version 1)
Quarter: 2018Q4

REPORT INFORMATION
  Report Type: Spontaneous
  Country: FR (occurrence: FR)
  Receive Date: 20181107
  Receipt Date: 20181107
  Transmission Date: 20190205
  Serious: Yes (Hospitalization, Other)
  Sender: FDA-Public Use
  Company Number: FR-ACCORD-091367

PATIENT
  Age: 15 Year
  Sex: Male
  Weight: 63 kg

DRUGS (6)
  1. PEGASPARGASE [Suspect]
     Active Substance: PEGASPARGASE
     Indication: T-CELL TYPE ACUTE LEUKAEMIA
     Route: 042
     Dates: start: 20170903, end: 20180105
  2. CYTARABINE. [Suspect]
     Active Substance: CYTARABINE
     Indication: T-CELL TYPE ACUTE LEUKAEMIA
     Route: 024
     Dates: start: 20170902, end: 20180105
  3. VINCRISTINE [Suspect]
     Active Substance: VINCRISTINE
     Indication: T-CELL TYPE ACUTE LEUKAEMIA
     Route: 042
     Dates: start: 20170412, end: 20180116
  4. METHOTREXATE. [Suspect]
     Active Substance: METHOTREXATE
     Indication: T-CELL TYPE ACUTE LEUKAEMIA
     Dosage: 15MG 13-JUL-2017 TO 05-JAN-2017,INTRASPINAL,177 DAYS
     Route: 042
     Dates: start: 20171102, end: 20171204
  5. ERWINASE [Suspect]
     Active Substance: ASPARAGINASE ERWINIA CHRYSANTHEMI
     Indication: T-CELL TYPE ACUTE LEUKAEMIA
     Route: 042
     Dates: start: 20180105, end: 20180117
  6. DOXORUBICIN [Suspect]
     Active Substance: DOXORUBICIN
     Indication: T-CELL TYPE ACUTE LEUKAEMIA
     Route: 042
     Dates: start: 20180102, end: 20180116

REACTIONS (1)
  - Lewis-Sumner syndrome [Not Recovered/Not Resolved]

NARRATIVE: CASE EVENT DATE: 20180122
